FAERS Safety Report 13515361 (Version 1)
Quarter: 2017Q2

REPORT INFORMATION
  Report Type: Spontaneous
  Country: CN (occurrence: CN)
  Receive Date: 20170504
  Receipt Date: 20170504
  Transmission Date: 20170830
  Serious: Yes (Life-Threatening)
  Sender: FDA-Public Use
  Company Number: CN-ASTRAZENECA-2017SE45726

PATIENT
  Age: 49 Year
  Sex: Male

DRUGS (3)
  1. BRILINTA [Suspect]
     Active Substance: TICAGRELOR
     Route: 048
  2. ASPIRIN. [Concomitant]
     Active Substance: ASPIRIN
  3. OMEPRAZOLE SODIUM [Suspect]
     Active Substance: OMEPRAZOLE SODIUM
     Indication: ULCER
     Route: 042
     Dates: start: 20170315

REACTIONS (9)
  - Nausea [Recovered/Resolved]
  - Gastric ulcer haemorrhage [Recovered/Resolved]
  - Gastrointestinal vascular malformation [Unknown]
  - Duodenal ulcer [Unknown]
  - Thrombin time prolonged [Unknown]
  - Blood pressure decreased [Recovered/Resolved]
  - Haemorrhagic anaemia [Unknown]
  - Shock [Unknown]
  - Chest discomfort [Unknown]

NARRATIVE: CASE EVENT DATE: 20170314
